FAERS Safety Report 13688041 (Version 1)
Quarter: 2017Q2

REPORT INFORMATION
  Report Type: Spontaneous
  Country: US (occurrence: US)
  Receive Date: 20170626
  Receipt Date: 20170626
  Transmission Date: 20170830
  Serious: No
  Sender: FDA-Public Use
  Company Number: US-ACCORD-044664

PATIENT
  Age: 60 Year
  Sex: Female
  Weight: 77.11 kg

DRUGS (1)
  1. CLONAZEPAM ACCORD [Suspect]
     Active Substance: CLONAZEPAM
     Indication: ANXIETY
     Dosage: FREQUENCY: 1/3 Q AM (EVERY MORNING BEFORE NOON), AND 2/3 QHS (EVERY NIGHT AT BED TIME) STRENGTH 1 MG
     Route: 048
     Dates: start: 20160908

REACTIONS (3)
  - Cough [Unknown]
  - Product substitution issue [Unknown]
  - Nervousness [Unknown]
